FAERS Safety Report 10074419 (Version 1)
Quarter: 2014Q2

REPORT INFORMATION
  Report Type: Spontaneous
  Country: US (occurrence: US)
  Receive Date: 20140413
  Receipt Date: 20140413
  Transmission Date: 20141212
  Serious: No
  Sender: FDA-Public Use
  Company Number: US-009507513-1404USA004382

PATIENT
  Age: 70 Year
  Sex: Female

DRUGS (2)
  1. ZIOPTAN [Suspect]
     Indication: GLAUCOMA
     Dosage: 2 GTT, ONE DROP PER EYE DAILY
     Route: 047
     Dates: start: 2012
  2. LEVOTHYROXINE SODIUM [Concomitant]
     Route: 048

REACTIONS (7)
  - Eyelid skin dryness [Not Recovered/Not Resolved]
  - Dry skin [Not Recovered/Not Resolved]
  - Eyelid oedema [Not Recovered/Not Resolved]
  - Erythema of eyelid [Not Recovered/Not Resolved]
  - Eyelid irritation [Not Recovered/Not Resolved]
  - Paraesthesia [Not Recovered/Not Resolved]
  - Pruritus [Not Recovered/Not Resolved]
